FAERS Safety Report 5405021-8 (Version None)
Quarter: 2007Q3

REPORT INFORMATION
  Report Type: 
  Country: None (occurrence: None)
  Receive Date: 20070803
  Receipt Date: 20070726
  Transmission Date: 20080115
  Serious: Yes (Hospitalization)
  Sender: FDA-Public Use
  Company Number: US-AVENTIS-200716862GDDC

PATIENT
  Age: 68 Year
  Sex: Female
  Weight: 52.62 kg

DRUGS (10)
  1. TAXOTERE [Suspect]
     Indication: NON-SMALL CELL LUNG CANCER
     Route: 042
     Dates: start: 20070718, end: 20070718
  2. TARCEVA                            /01611401/ [Suspect]
     Indication: NON-SMALL CELL LUNG CANCER
     Dosage: DOSE: 200 DAY 2-16 EVERY 21 DAYS
     Route: 048
     Dates: start: 20070719, end: 20070723
  3. DILTIAZEM [Concomitant]
     Route: 048
  4. DIGOXIN [Concomitant]
     Route: 048
  5. METFORMIN HCL [Concomitant]
     Route: 048
  6. PERCOCET                           /00867901/ [Concomitant]
     Indication: PAIN
     Dosage: DOSE: ON E TO TWO TABLETS Q6H
     Route: 048
  7. COMPAZINE [Concomitant]
     Indication: NAUSEA
     Route: 048
  8. COMPAZINE [Concomitant]
     Indication: VOMITING
     Route: 048
  9. MS CONTIN [Concomitant]
     Route: 048
  10. HEPARIN [Concomitant]
     Dosage: DOSE: UNK

REACTIONS (7)
  - DEHYDRATION [None]
  - DIARRHOEA [None]
  - HYPERCALCAEMIA [None]
  - NAUSEA [None]
  - ORAL INTAKE REDUCED [None]
  - RENAL FAILURE ACUTE [None]
  - VOMITING [None]
